FAERS Safety Report 9718273 (Version 1)
Quarter: 2013Q4

REPORT INFORMATION
  Report Type: Spontaneous
  Country: US (occurrence: US)
  Receive Date: 20131125
  Receipt Date: 20131125
  Transmission Date: 20140711
  Serious: No
  Sender: FDA-Public Use
  Company Number: US-VIVUS-2013V1000101

PATIENT
  Age: 30 Year
  Sex: Female

DRUGS (1)
  1. QSYMIA 3.75MG/23MG [Suspect]
     Indication: PRODUCT USED FOR UNKNOWN INDICATION
     Route: 048
     Dates: start: 20130207

REACTIONS (3)
  - Panic attack [Not Recovered/Not Resolved]
  - Feeling abnormal [Not Recovered/Not Resolved]
  - Palpitations [Not Recovered/Not Resolved]
